FAERS Safety Report 9636093 (Version 1)
Quarter: 2013Q4

REPORT INFORMATION
  Report Type: Spontaneous
  Country: AT (occurrence: AT)
  Receive Date: 20131021
  Receipt Date: 20131021
  Transmission Date: 20140711
  Serious: Yes (Hospitalization)
  Sender: FDA-Public Use
  Company Number: AT-PFIZER INC-2013294806

PATIENT
  Sex: Female
  Weight: 78.8 kg

DRUGS (8)
  1. SORTIS [Suspect]
     Dosage: 40 MG, 1X/DAY
     Route: 048
     Dates: end: 20131007
  2. ATARAX [Suspect]
     Dosage: 37.5 MG, 1X/DAY
     Dates: end: 20130813
  3. ZYPREXA [Suspect]
     Dosage: 2.5 MG, 1X/DAY
     Dates: end: 20120501
  4. ZYPREXA [Suspect]
     Dosage: 10 MG, 1X/DAY
     Dates: start: 20120301, end: 201305
  5. SAROTEN [Suspect]
     Dosage: 10 MG, 1X/DAY
     Dates: start: 20120412
  6. TRITTICO [Suspect]
     Dosage: 25 MG, 1X/DAY
     Dates: start: 20130813
  7. CYMBALTA [Suspect]
     Dosage: 90 MG, 1X/DAY
  8. MARCOUMAR [Suspect]
     Dosage: UNK
     Dates: start: 200907

REACTIONS (1)
  - Dyskinesia [Recovered/Resolved]
